FAERS Safety Report 25984855 (Version 1)
Quarter: 2025Q4

REPORT INFORMATION
  Report Type: Spontaneous
  Country: JP (occurrence: JP)
  Receive Date: 20251031
  Receipt Date: 20251031
  Transmission Date: 20260118
  Serious: Yes (Other)
  Sender: PFIZER
  Company Number: JP-PFIZER INC-PV202500127445

PATIENT
  Age: 8 Decade
  Sex: Female

DRUGS (6)
  1. RITUXIMAB [Suspect]
     Active Substance: RITUXIMAB
     Indication: Follicular lymphoma
     Dosage: UNK, CYCLIC, INITIATED 62 MONTHS PRIOR TO REFERRAL
  2. RITUXIMAB [Suspect]
     Active Substance: RITUXIMAB
     Dosage: UNK, CYCLIC, STARTING 60 MONTHS BEFORE REFERRAL
  3. RITUXIMAB [Suspect]
     Active Substance: RITUXIMAB
     Dosage: UNK, CYCLIC, NINE CYCLES, MONOTHERAPY, 42 MONTHS BEFORE REFERRAL
  4. RITUXIMAB [Suspect]
     Active Substance: RITUXIMAB
     Dosage: UNK, CYCLIC, 4 CYCLES, 42 MONTHS BEFORE REFERRAL
  5. BENDAMUSTINE HYDROCHLORIDE [Suspect]
     Active Substance: BENDAMUSTINE HYDROCHLORIDE
     Indication: Follicular lymphoma
     Dosage: UNK, CYCLIC,STARTING 60 MONTHS BEFORE REFERRAL
  6. BENDAMUSTINE HYDROCHLORIDE [Suspect]
     Active Substance: BENDAMUSTINE HYDROCHLORIDE
     Dosage: UNK, CYCLIC, 4 CYCLES,  COMPLETED 42 MONTHS BEFORE REFERRAL

REACTIONS (2)
  - Hepatitis B reactivation [Recovering/Resolving]
  - Hepatic failure [Recovered/Resolved]
